FAERS Safety Report 6091293-6 (Version None)
Quarter: 2009Q1

REPORT INFORMATION
  Report Type: 
  Country: None (occurrence: None)
  Receive Date: 20090225
  Receipt Date: 20090216
  Transmission Date: 20090719
  Serious: Yes (Hospitalization)
  Sender: FDA-Public Use
  Company Number: US-AMGEN-QUU332709

PATIENT
  Sex: Female

DRUGS (2)
  1. ENBREL [Suspect]
     Indication: RHEUMATOID ARTHRITIS
     Route: 058
     Dates: start: 20071024
  2. PLAQUENIL [Concomitant]
     Dates: start: 20000101

REACTIONS (4)
  - ENDODONTIC PROCEDURE [None]
  - FALL [None]
  - TOOTH INFECTION [None]
  - UPPER LIMB FRACTURE [None]
